FAERS Safety Report 15559758 (Version 1)
Quarter: 2018Q4

REPORT INFORMATION
  Report Type: Spontaneous
  Country: US (occurrence: US)
  Receive Date: 20181029
  Receipt Date: 20181029
  Transmission Date: 20190205
  Serious: No
  Sender: FDA-Public Use
  Company Number: US-LUPIN PHARMACEUTICALS INC.-2017-06590

PATIENT
  Age: 83 Year
  Sex: Female

DRUGS (1)
  1. LISINOPRIL. [Suspect]
     Active Substance: LISINOPRIL
     Indication: CARDIAC DYSFUNCTION
     Dosage: UNK
     Route: 065

REACTIONS (2)
  - Cough [Unknown]
  - Drug intolerance [Unknown]
